FAERS Safety Report 14692307 (Version 1)
Quarter: 2018Q1

REPORT INFORMATION
  Report Type: Spontaneous
  Country: FR (occurrence: FR)
  Receive Date: 20180329
  Receipt Date: 20180329
  Transmission Date: 20180509
  Serious: Yes (Other)
  Sender: FDA-Public Use
  Company Number: FR-CIPLA LTD.-2018FR12429

PATIENT

DRUGS (5)
  1. LEVETIRACETAM. [Suspect]
     Active Substance: LEVETIRACETAM
     Indication: STATUS EPILEPTICUS
     Dosage: 1000 MG, PER DAY
     Route: 048
     Dates: start: 20171105
  2. RIVOTRIL [Suspect]
     Active Substance: CLONAZEPAM
     Indication: STATUS EPILEPTICUS
     Dosage: 1 MG, PER DAY
     Route: 048
     Dates: start: 20171105
  3. ROCEPHINE [Suspect]
     Active Substance: CEFTRIAXONE SODIUM
     Indication: PRODUCT USED FOR UNKNOWN INDICATION
     Dosage: 1 G, PER DAY
     Route: 042
     Dates: start: 20171105
  4. NIVAQUINE [Suspect]
     Active Substance: CHLOROQUINE
     Indication: PLASMODIUM OVALE INFECTION
     Dosage: UNK
     Route: 048
     Dates: start: 20171107, end: 20171108
  5. MALARONE [Suspect]
     Active Substance: ATOVAQUONE\PROGUANIL HYDROCHLORIDE
     Indication: PLASMODIUM OVALE INFECTION
     Dosage: 4 DF, PER DAY
     Route: 048
     Dates: start: 20171106

REACTIONS (2)
  - Pruritus [Not Recovered/Not Resolved]
  - Neutropenia [Not Recovered/Not Resolved]

NARRATIVE: CASE EVENT DATE: 20171108
